FAERS Safety Report 8322887-2 (Version None)
Quarter: 2012Q2

REPORT INFORMATION
  Report Type: 
  Country: None (occurrence: None)
  Receive Date: 20120430
  Receipt Date: 20120425
  Transmission Date: 20120825
  Serious: Yes (Other)
  Sender: FDA-Public Use
  Company Number: CHPA2012US008659

PATIENT
  Age: 85 Year
  Sex: Male

DRUGS (2)
  1. PREVACID 24 HR [Suspect]
     Indication: DYSPEPSIA
     Dosage: 15 MG, QD
     Route: 048
  2. MAALOX MAX MAXIMUM STRENGTH [Concomitant]
     Dosage: 1-2 DF, AS NEEDED

REACTIONS (5)
  - LIP PAIN [None]
  - OFF LABEL USE [None]
  - MIDDLE EAR EFFUSION [None]
  - WRONG TECHNIQUE IN DRUG USAGE PROCESS [None]
  - EAR PAIN [None]
